FAERS Safety Report 5041997-9 (Version None)
Quarter: 2006Q2

REPORT INFORMATION
  Report Type: 
  Country: None (occurrence: None)
  Receive Date: 20060627
  Receipt Date: 20060615
  Transmission Date: 20061013
  Serious: Yes (Hospitalization, Disabling, Other)
  Sender: FDA-Public Use
  Company Number: 2004035108

PATIENT
  Age: 59 Year
  Sex: Female
  Weight: 67.586 kg

DRUGS (14)
  1. LIPITOR [Suspect]
     Indication: BLOOD CHOLESTEROL INCREASED
     Dosage: 20 MG (20 MG, 1 IN 1 D), ORAL
     Route: 048
     Dates: start: 20030701, end: 20031107
  2. MECLIZINE [Suspect]
     Indication: VERTIGO
     Dates: start: 20031104, end: 20031105
  3. KEFLEX [Suspect]
     Indication: ABSCESS
     Dosage: 500 MG (500 MG, 1 IN 1 D)
     Dates: start: 20031101, end: 20031102
  4. TRAZODONE HCL [Suspect]
     Indication: ILL-DEFINED DISORDER
     Dosage: ORAL
     Route: 048
  5. PROZAC [Suspect]
     Indication: ILL-DEFINED DISORDER
     Dates: start: 20040101, end: 20040101
  6. LEXAPRO [Suspect]
     Indication: ILL-DEFINED DISORDER
  7. RITALIN [Concomitant]
  8. PREDNISONE TAB [Concomitant]
  9. EFFEXOR XR [Concomitant]
  10. AMITRIPTYLINE HCL [Concomitant]
  11. PROVIGIL [Concomitant]
  12. MINOCYCLINE HCL [Concomitant]
  13. NAMENDA [Concomitant]
  14. CARNITOR (LEVOCARNITINE) [Concomitant]

REACTIONS (77)
  - ABDOMINAL DISCOMFORT [None]
  - ABSCESS [None]
  - ACTIVITIES OF DAILY LIVING IMPAIRED [None]
  - ALANINE AMINOTRANSFERASE INCREASED [None]
  - ANGER [None]
  - ANOREXIA [None]
  - ANXIETY [None]
  - ARTHRALGIA [None]
  - ARTHROPOD BITE [None]
  - ASTHENIA [None]
  - BLOOD CREATINE PHOSPHOKINASE INCREASED [None]
  - BLOOD PRESSURE SYSTOLIC INCREASED [None]
  - BOWEL MOVEMENT IRREGULARITY [None]
  - BURNING SENSATION [None]
  - CEREBRAL DISORDER [None]
  - CHILLS [None]
  - CONFUSIONAL STATE [None]
  - CONSTIPATION [None]
  - COUGH [None]
  - CRYING [None]
  - DIARRHOEA [None]
  - DIFFICULTY IN WALKING [None]
  - DISTURBANCE IN ATTENTION [None]
  - DIVERTICULUM INTESTINAL [None]
  - DIZZINESS [None]
  - DRUG HYPERSENSITIVITY [None]
  - DRUG INEFFECTIVE [None]
  - DRUG INTOLERANCE [None]
  - DYSPEPSIA [None]
  - ERYTHEMA [None]
  - EXERCISE TOLERANCE DECREASED [None]
  - FATIGUE [None]
  - FEELING ABNORMAL [None]
  - FEELING DRUNK [None]
  - FIBROCYSTIC BREAST DISEASE [None]
  - FIBROMYALGIA [None]
  - FRUSTRATION [None]
  - GASTROINTESTINAL HYPERMOTILITY [None]
  - GOITRE [None]
  - HEPATIC LESION [None]
  - HYPERHIDROSIS [None]
  - HYPOAESTHESIA [None]
  - HYPOTONIA [None]
  - INFLAMMATION [None]
  - INFLUENZA LIKE ILLNESS [None]
  - INTERVERTEBRAL DISC DEGENERATION [None]
  - LYMPHOID TISSUE HYPERPLASIA [None]
  - MAJOR DEPRESSION [None]
  - MALAISE [None]
  - MASS [None]
  - MITOCHONDRIAL MYOPATHY [None]
  - MUSCLE ATROPHY [None]
  - MUSCLE INJURY [None]
  - MUSCLE SPASMS [None]
  - MYALGIA [None]
  - NAUSEA [None]
  - NEUROPATHY PERIPHERAL [None]
  - OEDEMA PERIPHERAL [None]
  - OSTEOCHONDROMA [None]
  - PELVIC INFLAMMATORY DISEASE [None]
  - PHARYNGOLARYNGEAL PAIN [None]
  - PRURITUS [None]
  - PSYCHOMOTOR HYPERACTIVITY [None]
  - RASH [None]
  - RHINORRHOEA [None]
  - SENSATION OF HEAVINESS [None]
  - SNEEZING [None]
  - SOFT TISSUE DISORDER [None]
  - SPINAL OSTEOARTHRITIS [None]
  - SWELLING [None]
  - TEARFULNESS [None]
  - THERAPY NON-RESPONDER [None]
  - TINNITUS [None]
  - TREMOR [None]
  - URINE OUTPUT DECREASED [None]
  - VERTIGO [None]
  - WEIGHT FLUCTUATION [None]
